FAERS Safety Report 18452066 (Version 1)
Quarter: 2020Q4

REPORT INFORMATION
  Report Type: Spontaneous
  Country: None (occurrence: NL)
  Receive Date: 20201102
  Receipt Date: 20201102
  Transmission Date: 20210114
  Serious: Yes (Hospitalization)
  Sender: FDA-Public Use
  Company Number: NL-COEPTIS PHARMACEUTICALS, INC.-COE-2020-000059

PATIENT
  Age: 23 Year
  Sex: Female

DRUGS (2)
  1. METOPROLOL SUCCINATE. [Suspect]
     Active Substance: METOPROLOL SUCCINATE
  2. AMLODIPINE [Suspect]
     Active Substance: AMLODIPINE BESYLATE

REACTIONS (8)
  - Toxicity to various agents [Unknown]
  - Sinus bradycardia [Unknown]
  - Somnolence [Unknown]
  - Multiple organ dysfunction syndrome [Unknown]
  - Respiratory failure [Recovering/Resolving]
  - Anuria [Recovered/Resolved]
  - Cardiogenic shock [Unknown]
  - Lactic acidosis [Recovered/Resolved]
